FAERS Safety Report 4664370-1 (Version None)
Quarter: 2005Q2

REPORT INFORMATION
  Report Type: 
  Country: None (occurrence: None)
  Receive Date: 20050518
  Receipt Date: 20050421
  Transmission Date: 20051028
  Serious: Yes (Life-Threatening, Hospitalization)
  Sender: FDA-Public Use
  Company Number: US-AMGEN-US128026

PATIENT
  Sex: Male
  Weight: 73.1 kg

DRUGS (8)
  1. NEULASTA [Suspect]
     Indication: CHEMOTHERAPY
     Route: 058
     Dates: start: 20050415
  2. ETOPOSIDE [Concomitant]
     Dates: start: 20050412, end: 20050414
  3. CARBOPLATIN [Concomitant]
     Dates: start: 20050412, end: 20050414
  4. LOPRESSOR [Concomitant]
  5. SIMVASTATIN [Concomitant]
  6. DEMECLOCYCLINE [Concomitant]
  7. SERAX [Concomitant]
  8. COMPAZINE [Concomitant]

REACTIONS (8)
  - BLOOD POTASSIUM DECREASED [None]
  - DEHYDRATION [None]
  - DRUG INEFFECTIVE [None]
  - FEBRILE NEUTROPENIA [None]
  - HYPOMAGNESAEMIA [None]
  - HYPONATRAEMIA [None]
  - HYPOPHOSPHATAEMIA [None]
  - PNEUMONIA BACTERIAL [None]
